FAERS Safety Report 19577430 (Version 11)
Quarter: 2021Q3

REPORT INFORMATION
  Report Type: Spontaneous
  Country: HR (occurrence: HR)
  Receive Date: 20210719
  Receipt Date: 20210929
  Transmission Date: 20211014
  Serious: Yes (Hospitalization, Other)
  Sender: FDA-Public Use
  Company Number: HR-PFIZER INC-2021887602

PATIENT
  Age: 46 Year
  Sex: Female
  Weight: 84 kg

DRUGS (30)
  1. CONTROLOC [Suspect]
     Active Substance: PANTOPRAZOLE SODIUM
     Indication: NEPHROPATHY TOXIC
     Dosage: 40 MILLIGRAM, QD
     Route: 048
     Dates: start: 20180405
  2. FURSEMIDE [Interacting]
     Active Substance: FUROSEMIDE
     Indication: NEPHROPATHY TOXIC
  3. PROPRANOLOL [PROPRANOLOL HYDROCHLORIDE] [Interacting]
     Active Substance: PROPRANOLOL HYDROCHLORIDE
     Indication: OFF LABEL USE
  4. METHYLPREDNISOLONE. [Concomitant]
     Active Substance: METHYLPREDNISOLONE
     Indication: NEPHROPATHY TOXIC
     Dosage: UNK
     Route: 048
  5. SORTIS [Interacting]
     Active Substance: ATORVASTATIN
     Indication: DYSLIPIDAEMIA
     Dosage: 20 MILLIGRAM, QD
     Route: 048
     Dates: start: 20180412, end: 20180510
  6. CALCITRIOL. [Concomitant]
     Active Substance: CALCITRIOL
     Indication: HYPOCALCAEMIA
     Dosage: 0.25 MICROGRAM, QOD
     Route: 065
  7. CHOLIB [Concomitant]
     Active Substance: FENOFIBRATE\SIMVASTATIN
     Dosage: UNK
     Route: 048
     Dates: start: 20200317, end: 20200520
  8. CEFTRIAXONE [CEFTRIAXONE SODIUM] [Interacting]
     Active Substance: CEFTRIAXONE SODIUM
     Indication: URINARY TRACT INFECTION
  9. PROPRANOLOL [PROPRANOLOL HYDROCHLORIDE] [Interacting]
     Active Substance: PROPRANOLOL HYDROCHLORIDE
     Indication: MIGRAINE
     Dosage: 20 MILLIGRAM, TID
  10. POTASSIUM HYDROGEN CARBONATE;SODIUM CITRATE;SODIUM HYDROGEN CARBONATE [Concomitant]
     Indication: HYPOKALAEMIA
     Dosage: 2 GRAM, QD
     Route: 065
  11. CALCIUM CARBONATE. [Concomitant]
     Active Substance: CALCIUM CARBONATE
     Indication: HYPOCALCAEMIA
     Dosage: 1 GRAM, TID
     Route: 048
  12. POTASSIUM CITRATE. [Concomitant]
     Active Substance: POTASSIUM CITRATE
     Indication: SUPPLEMENTATION THERAPY
     Dosage: 2 GRAM, QD
     Route: 065
  13. CHOLIB [Concomitant]
     Active Substance: FENOFIBRATE\SIMVASTATIN
     Indication: DYSLIPIDAEMIA
     Dosage: 145/20 MILLIGRAM
     Route: 065
  14. VOLTAREN RAPID [Suspect]
     Active Substance: DICLOFENAC POTASSIUM
     Dosage: 200 MILLIGRAM, QD
     Route: 048
     Dates: start: 201801, end: 20180325
  15. METHYLPREDNISOLONE. [Concomitant]
     Active Substance: METHYLPREDNISOLONE
     Indication: ACUTE KIDNEY INJURY
     Dosage: 250 MILLIGRAM, QD
     Route: 042
  16. CHOLIB [Concomitant]
     Active Substance: FENOFIBRATE\SIMVASTATIN
     Dosage: 140/40 MILLIGRAM
     Route: 065
  17. PREDNISONE. [Interacting]
     Active Substance: PREDNISONE
     Dosage: 60 MILLIGRAM, QD
     Route: 048
  18. CALCITRIOL. [Interacting]
     Active Substance: CALCITRIOL
     Indication: HYPOCALCAEMIA
     Dosage: 0.25 MICROGRAM, QOD
     Route: 048
  19. PREDNISONE. [Concomitant]
     Active Substance: PREDNISONE
     Dosage: 60 MILLIGRAM, QD
     Route: 065
  20. PROPRANOLOL [PROPRANOLOL HYDROCHLORIDE] [Concomitant]
     Active Substance: PROPRANOLOL HYDROCHLORIDE
     Indication: MIGRAINE
     Dosage: 20 MILLIGRAM, TID
     Route: 065
  21. CEFTRIAXONE [CEFTRIAXONE SODIUM] [Interacting]
     Active Substance: CEFTRIAXONE SODIUM
     Indication: PNEUMONIA
     Dosage: 1 GRAM, QD
     Route: 042
     Dates: start: 20180429, end: 20180505
  22. CEFTRIAXONE [CEFTRIAXONE SODIUM] [Interacting]
     Active Substance: CEFTRIAXONE SODIUM
     Indication: PNEUMONIA
  23. FURSEMIDE [Interacting]
     Active Substance: FUROSEMIDE
     Indication: ACUTE KIDNEY INJURY
     Dosage: 40 MILLIGRAM, QD
     Route: 048
     Dates: start: 20180325
  24. SULOTRIM [Interacting]
     Active Substance: SULFAMETHOXAZOLE\TRIMETHOPRIM
     Indication: URINARY TRACT INFECTION
     Dosage: 400/80 MILLIGRAM, BID
     Route: 048
     Dates: start: 201801, end: 20180325
  25. VOLTAREN RAPID [Suspect]
     Active Substance: DICLOFENAC POTASSIUM
     Indication: MIGRAINE
     Dosage: UNK
     Route: 048
  26. VOLTAREN RAPID [Suspect]
     Active Substance: DICLOFENAC POTASSIUM
     Dosage: 200 MILLIGRAM, QD
     Route: 048
     Dates: end: 2018
  27. CALCITRIOL. [Interacting]
     Active Substance: CALCITRIOL
     Dosage: 0.5 MICROGRAM
     Route: 065
  28. POTASSIUM CITRATE. [Concomitant]
     Active Substance: POTASSIUM CITRATE
     Indication: HYPOKALAEMIA
  29. CEFUROXIME. [Concomitant]
     Active Substance: CEFUROXIME
     Dosage: 1500 MG, QID
     Route: 048
  30. VOLTAREN RAPID [Suspect]
     Active Substance: DICLOFENAC POTASSIUM
     Dosage: 150 MILLIGRAM, QD
     Route: 048

REACTIONS (7)
  - Drug interaction [Recovered/Resolved]
  - Renal injury [Recovered/Resolved]
  - Off label use [Unknown]
  - Inappropriate schedule of product administration [Unknown]
  - Drug-induced liver injury [Recovered/Resolved]
  - Product use issue [Unknown]
  - Myalgia [Unknown]

NARRATIVE: CASE EVENT DATE: 20180325
